FAERS Safety Report 20893038 (Version 2)
Quarter: 2022Q2

REPORT INFORMATION
  Report Type: Spontaneous
  Country: US (occurrence: US)
  Receive Date: 20220531
  Receipt Date: 20220531
  Transmission Date: 20220721
  Serious: No
  Sender: FDA-Public Use
  Company Number: US-JNJFOC-20220547256

PATIENT
  Age: 50 Year
  Sex: Female
  Weight: 70.31 kg

DRUGS (6)
  1. TYLENOL [Suspect]
     Active Substance: ACETAMINOPHEN
     Indication: Oropharyngeal pain
     Route: 065
     Dates: start: 2022
  2. TYLENOL [Suspect]
     Active Substance: ACETAMINOPHEN
     Indication: Neck pain
  3. TYLENOL [Suspect]
     Active Substance: ACETAMINOPHEN
     Indication: Chest pain
  4. COVID-19 VACCINE [Concomitant]
     Indication: COVID-19 immunisation
     Route: 065
     Dates: start: 20210415
  5. COVID-19 VACCINE [Concomitant]
     Route: 065
     Dates: start: 20210514
  6. COVID-19 VACCINE [Concomitant]
     Route: 065
     Dates: start: 20220218

REACTIONS (1)
  - Therapeutic product effect incomplete [Unknown]

NARRATIVE: CASE EVENT DATE: 20220101
